FAERS Safety Report 7351057-X (Version None)
Quarter: 2011Q1

REPORT INFORMATION
  Report Type: 
  Country: None (occurrence: None)
  Receive Date: 20110314
  Receipt Date: 20110308
  Transmission Date: 20110831
  Serious: Yes (Hospitalization, Other)
  Sender: FDA-Public Use
  Company Number: CHNY2011DE00444

PATIENT
  Age: 34 Year
  Sex: Male

DRUGS (1)
  1. XYLOMETAZOLINE HYDROCHLORIDE [Suspect]
     Dosage: UNK, UP TO 5 TIMES DAILY
     Route: 045

REACTIONS (12)
  - CEREBROVASCULAR DISORDER [None]
  - OEDEMA MUCOSAL [None]
  - ABASIA [None]
  - DIPLOPIA [None]
  - OPHTHALMOPLEGIA [None]
  - ATAXIA [None]
  - DYSARTHRIA [None]
  - IVTH NERVE PARALYSIS [None]
  - VERTIGO [None]
  - ISCHAEMIC STROKE [None]
  - INTENTIONAL DRUG MISUSE [None]
  - INTENTIONAL OVERDOSE [None]
